FAERS Safety Report 6492094-7 (Version None)
Quarter: 2009Q4

REPORT INFORMATION
  Report Type: 
  Country: None (occurrence: None)
  Receive Date: 20091125
  Receipt Date: 20090508
  Transmission Date: 20100525
  Serious: Yes (Other)
  Sender: FDA-Public Use
  Company Number: 2009BH008318

PATIENT
  Age: 57 Year
  Sex: Female

DRUGS (14)
  1. DIANEAL [Suspect]
     Indication: PERITONEAL DIALYSIS
     Dosage: 14 L ; EVERY DAY ; IP
     Route: 033
  2. FOLIC ACID [Concomitant]
  3. ATENOLOL [Concomitant]
  4. HECTOROL [Concomitant]
  5. MEGACE ES [Concomitant]
  6. PREVACID [Concomitant]
  7. POTASSIUM [Concomitant]
  8. BOOST [Concomitant]
  9. KLOR-CON [Concomitant]
  10. AMLODIPINE [Concomitant]
  11. DIOVAN [Concomitant]
  12. ADALAT [Concomitant]
  13. ARANESP [Concomitant]
  14. GENTAMICIN [Concomitant]

REACTIONS (2)
  - PERITONEAL DIALYSIS COMPLICATION [None]
  - PERITONITIS BACTERIAL [None]
